FAERS Safety Report 15726799 (Version 1)
Quarter: 2018Q4

REPORT INFORMATION
  Report Type: Spontaneous
  Country: NL (occurrence: NL)
  Receive Date: 20181217
  Receipt Date: 20181217
  Transmission Date: 20190205
  Serious: Yes (Hospitalization, Other)
  Sender: FDA-Public Use
  Company Number: NL-ACCORD-096221

PATIENT
  Age: 51 Year
  Sex: Male
  Weight: 86 kg

DRUGS (3)
  1. MERCAPTOPURINE/MERCAPTOPURINE ANHYDROUS [Suspect]
     Active Substance: MERCAPTOPURINE
     Indication: COLITIS ULCERATIVE
     Dosage: DOSE REDUCED BY 25- 33 %, 150 MG (1.7 MG/KG) DAILY
     Route: 065
  2. ALLOPURINOL. [Suspect]
     Active Substance: ALLOPURINOL
     Indication: COLITIS ULCERATIVE
     Route: 065
  3. SALOFALK [Suspect]
     Active Substance: MESALAMINE
     Indication: COLITIS ULCERATIVE
     Dosage: ALSO RECEIVED SAME DRUG THROUGH ORAL ROUTE OF ADMINISTRATION
     Route: 054

REACTIONS (5)
  - Pyrexia [Unknown]
  - Anaemia [Recovered/Resolved]
  - Leukopenia [Recovering/Resolving]
  - Bone marrow failure [Unknown]
  - Condition aggravated [Unknown]
